FAERS Safety Report 5797758-6 (Version None)
Quarter: 2008Q3

REPORT INFORMATION
  Report Type: 
  Country: None (occurrence: None)
  Receive Date: 20080702
  Receipt Date: 20080619
  Transmission Date: 20090109
  Serious: Yes (Hospitalization)
  Sender: FDA-Public Use
  Company Number: JP-NOVOPROD-276346

PATIENT
  Age: 81 Year
  Sex: Male
  Weight: 54 kg

DRUGS (13)
  1. LEVEMIR [Suspect]
     Indication: INSULIN-REQUIRING TYPE 2 DIABETES MELLITUS
     Dosage: 5 IU, QD
     Route: 058
     Dates: start: 20080118, end: 20080507
  2. NPH ILETIN I                       /00030504/ [Concomitant]
     Indication: TYPE 2 DIABETES MELLITUS
  3. NOVORAPID CHU FLEXPEN [Concomitant]
     Indication: INSULIN-REQUIRING TYPE 2 DIABETES MELLITUS
     Dosage: 15 IU, QD
     Route: 058
     Dates: start: 20060501
  4. OPALMON [Concomitant]
     Indication: SPINAL OSTEOARTHRITIS
     Dosage: 30 MEQ, QD
     Route: 048
     Dates: start: 20080427
  5. JUVELA N [Concomitant]
     Indication: SPINAL OSTEOARTHRITIS
     Dosage: 600 MG, QD
     Route: 048
     Dates: start: 20080428
  6. METHYCOBAL                         /00056201/ [Concomitant]
     Indication: SPINAL OSTEOARTHRITIS
     Dosage: 1500 MEQ, QD
     Route: 048
     Dates: start: 20080428
  7. CALONAL [Concomitant]
     Dosage: 1200 MG, QD
     Route: 048
  8. MAGLAX [Concomitant]
     Indication: CONSTIPATION
     Dosage: 990 MG, UNK
     Route: 048
  9. LOXONIN                            /00890701/ [Concomitant]
     Indication: SPINAL OSTEOARTHRITIS
     Dosage: 180 MG, QD
     Route: 048
     Dates: start: 20080428
  10. MUCOSTA [Concomitant]
     Indication: GASTRIC ULCER
     Dosage: 300 MG, QD
     Route: 048
  11. FAMOTIDINE [Concomitant]
     Indication: GASTRIC ULCER
     Dosage: 60 MG, QD
     Route: 048
  12. RHYTHMY                            /01029801/ [Concomitant]
     Indication: INSOMNIA
     Dosage: 1 MG, QD
     Route: 048
  13. NITRAZEPAM [Concomitant]
     Indication: INSOMNIA
     Dosage: 5 MG, QD
     Route: 048

REACTIONS (3)
  - ALLERGIC GRANULOMATOUS ANGIITIS [None]
  - EOSINOPHIL COUNT INCREASED [None]
  - SENSORY DISTURBANCE [None]
